FAERS Safety Report 4715057-8 (Version None)
Quarter: 2005Q3

REPORT INFORMATION
  Report Type: 
  Country: None (occurrence: None)
  Receive Date: 20050715
  Receipt Date: 20050706
  Transmission Date: 20060218
  Serious: Yes (Hospitalization)
  Sender: FDA-Public Use
  Company Number: FI-SOLVAY-00205002161

PATIENT
  Age: 21509 Day
  Sex: Male
  Weight: 76 kg

DRUGS (7)
  1. PRIMASPAN [Concomitant]
     Indication: ILL-DEFINED DISORDER
     Dosage: DAILY DOSE:  UNKNOWN
     Route: 048
     Dates: start: 19990126
  2. PERINDOPRIL [Suspect]
     Indication: HYPERTENSION
     Dosage: DAILY DOSE: 4 MILLIGRAM(S)
     Route: 048
     Dates: start: 19990127, end: 19990216
  3. PERINDOPRIL [Suspect]
     Dosage: DAILY DOSE: 4 MILLIGRAM(S)
     Route: 048
     Dates: start: 19990922, end: 20000315
  4. AMLODIPINE [Suspect]
     Indication: HYPERTENSION
     Dosage: DAILY DOSE: 5 MILLIGRAM(S)
     Route: 048
     Dates: start: 19981201, end: 19990316
  5. DOXAZOSIN MESYLATE [Suspect]
     Indication: HYPERTENSION
     Dosage: DAILY DOSE: 8 MILLIGRAM(S)
     Route: 048
     Dates: start: 19990323, end: 19990729
  6. ATORVASTATIN CALCIUM [Suspect]
     Indication: HYPERLIPIDAEMIA
     Dosage: DAILY DOSE:  UNKNOWN
     Route: 048
     Dates: start: 19981201, end: 19990813
  7. ATORVASTATIN CALCIUM [Suspect]
     Dosage: DAILY DOSE:  UNKNOWN
     Route: 048
     Dates: start: 19991108, end: 20011220

REACTIONS (1)
  - ECZEMA [None]
